FAERS Safety Report 8399434 (Version 7)
Quarter: 2013Q3

REPORT INFORMATION
  Report Type: Report from Study
  Country: JP (occurrence: JP)
  Receive Date: 20120210
  Receipt Date: 20130911
  Transmission Date: 20140515
  Serious: Yes (Hospitalization)
  Sender: FDA-Public Use
  Company Number: JP-BRISTOL-MYERS SQUIBB COMPANY-16387342

PATIENT
  Age: 64 Year
  Sex: Male
  Weight: 53.5 kg

DRUGS (7)
  1. ARIPIPRAZOLE IM DEPOT [Suspect]
     Indication: SCHIZOPHRENIA
     Route: 030
  2. ABILIFY TABS [Suspect]
     Indication: SCHIZOPHRENIA
     Dosage: 12MG 11JAN12-19JAN12(9DYS)?18MG 20JAN12-23JAN12(4DYS)?24MG 24JAN12-ONG
     Route: 048
     Dates: start: 20120111
  3. MOSAPRAMINE [Suspect]
     Dosage: UNKNOWN-26DEC11?27DEC11-27DEC11(1DY)
     Route: 048
  4. LODOPIN [Suspect]
     Dosage: 50MG;27DC11-27DC;1D,28DC-28DC;1D,29DC-29DC;1D:125MG,30DC-09JAN12;25MG;11D;BID,10JAN-10JAN;1D;QD
     Route: 048
     Dates: start: 20111227, end: 20120125
  5. DOGMATYL [Suspect]
     Dosage: UNK-28DEC11,29DC11-29DC(1D);375 MG/D,75MG;30DC-09JAN12;11D;BID,10JAN-10JAN;QD;1D,11JAN-23JAN;13D
     Route: 048
  6. RISPERDAL [Suspect]
     Dosage: FORMULATION:TAB
     Dates: start: 20120126, end: 20120315
  7. HALCION [Concomitant]
     Dosage: TAB
     Dates: end: 20120213

REACTIONS (2)
  - Persecutory delusion [Recovered/Resolved]
  - Anxiety [Recovered/Resolved]
